FAERS Safety Report 9191056 (Version 1)
Quarter: 2013Q1

REPORT INFORMATION
  Report Type: Spontaneous
  Country: DE (occurrence: DE)
  Receive Date: 20130326
  Receipt Date: 20130326
  Transmission Date: 20140127
  Serious: Yes (Other)
  Sender: FDA-Public Use
  Company Number: DE-CELGENEUS-062-21880-13032393

PATIENT
  Age: 68 Year
  Sex: Male
  Weight: 81.5 kg

DRUGS (1)
  1. REVLIMID [Suspect]
     Indication: PLASMA CELL MYELOMA
     Route: 048
     Dates: start: 20100105, end: 20121115

REACTIONS (1)
  - Myelodysplastic syndrome [Not Recovered/Not Resolved]
